FAERS Safety Report 7254621-1 (Version None)
Quarter: 2011Q1

REPORT INFORMATION
  Report Type: 
  Country: None (occurrence: None)
  Receive Date: 20110129
  Receipt Date: 20100409
  Transmission Date: 20110831
  Serious: No
  Sender: FDA-Public Use
  Company Number: US-ABBOTT-10P-163-0627857-00

PATIENT
  Sex: Male
  Weight: 88.984 kg

DRUGS (2)
  1. HUMIRA [Suspect]
     Indication: PSORIASIS
     Route: 058
     Dates: start: 20100212
  2. SORIATANE [Concomitant]
     Indication: PSORIASIS
     Route: 048
     Dates: end: 20100209

REACTIONS (6)
  - DRY SKIN [None]
  - SKIN IRRITATION [None]
  - PRURITUS [None]
  - SKIN TIGHTNESS [None]
  - RASH [None]
  - ERYTHEMA [None]
